FAERS Safety Report 9633475 (Version 2)
Quarter: 2013Q4

REPORT INFORMATION
  Report Type: Report from Study
  Country: ES (occurrence: ES)
  Receive Date: 20131021
  Receipt Date: 20131202
  Transmission Date: 20140711
  Serious: Yes (Hospitalization)
  Sender: FDA-Public Use
  Company Number: ES-INCYTE CORPORATION-2013IN002369

PATIENT
  Age: 67 Year
  Sex: Male
  Weight: 68.5 kg

DRUGS (5)
  1. INC424 [Suspect]
     Indication: MYELOFIBROSIS
     Dosage: 20 MG, BID
     Route: 048
     Dates: start: 20130906, end: 20130918
  2. INC424 [Suspect]
     Dosage: 10 MG, BID
     Route: 048
     Dates: start: 20130919, end: 20131004
  3. OMEPRAZOLE [Concomitant]
     Dosage: UNK
     Dates: start: 20101216
  4. ADIRO [Concomitant]
     Dosage: UNK
     Dates: start: 20101201
  5. JENTADUETO [Concomitant]
     Dosage: UNK
     Dates: start: 201307

REACTIONS (3)
  - Testicular pain [Recovered/Resolved]
  - Bone pain [Recovered/Resolved]
  - Anaemia [Recovered/Resolved]
